FAERS Safety Report 18334552 (Version 1)
Quarter: 2020Q4

REPORT INFORMATION
  Report Type: Spontaneous
  Country: US (occurrence: US)
  Receive Date: 20201001
  Receipt Date: 20201001
  Transmission Date: 20210113
  Serious: Yes (Other)
  Sender: FDA-Public Use
  Company Number: US-SAOL THERAPEUTICS-2020SAO00383

PATIENT
  Sex: Male
  Weight: 113.38 kg

DRUGS (8)
  1. LIORESAL [Suspect]
     Active Substance: BACLOFEN
     Indication: MUSCLE SPASTICITY
     Dosage: 688 ?G, \DAY
     Route: 037
     Dates: start: 20120607, end: 20200821
  2. MIRALAX [Concomitant]
     Active Substance: POLYETHYLENE GLYCOL 3350
  3. BACLOFEN. [Concomitant]
     Active Substance: BACLOFEN
     Dosage: UNK, AS NEEDED
     Route: 048
  4. ESCITALOPRAM [Concomitant]
     Active Substance: ESCITALOPRAM OXALATE
  5. ASPIRIN. [Concomitant]
     Active Substance: ASPIRIN
  6. LIORESAL [Suspect]
     Active Substance: BACLOFEN
     Indication: HEMIPARESIS
  7. FAMOTIDINE. [Concomitant]
     Active Substance: FAMOTIDINE
  8. VALSARTAN. [Concomitant]
     Active Substance: VALSARTAN

REACTIONS (2)
  - Haemorrhage intracranial [Unknown]
  - Device malfunction [Recovered/Resolved]

NARRATIVE: CASE EVENT DATE: 2018
